FAERS Safety Report 11734427 (Version 8)
Quarter: 2020Q1

REPORT INFORMATION
  Report Type: Spontaneous
  Country: US (occurrence: US)
  Receive Date: 20151113
  Receipt Date: 20200218
  Transmission Date: 20200409
  Serious: Yes (Congenital Anomaly, Other)
  Sender: FDA-Public Use
  Company Number: PHEH2015US023251

PATIENT
  Sex: Female

DRUGS (3)
  1. ZOFRAN [Suspect]
     Active Substance: ONDANSETRON HYDROCHLORIDE
     Indication: FOETAL EXPOSURE DURING PREGNANCY
     Dosage: MOTHERS DOSE: 4 MG, PRN 1 TO 3 TIMES DAILY
     Route: 064
  2. ZOFRAN [Suspect]
     Active Substance: ONDANSETRON HYDROCHLORIDE
     Indication: FOETAL EXPOSURE DURING PREGNANCY
     Dosage: MOTHER DOSE: 4 MG, UNK
     Route: 064
  3. ZOFRAN [Suspect]
     Active Substance: ONDANSETRON HYDROCHLORIDE
     Indication: FOETAL EXPOSURE DURING PREGNANCY
     Route: 064

REACTIONS (22)
  - Multiple congenital abnormalities [Unknown]
  - Cleft lip [Unknown]
  - Congenital oral malformation [Unknown]
  - Migraine [Unknown]
  - Depression [Unknown]
  - Dysphagia [Unknown]
  - Anxiety [Unknown]
  - Foetal exposure during pregnancy [Unknown]
  - Emotional distress [Unknown]
  - Pain [Unknown]
  - Pharyngitis [Unknown]
  - Dysmorphism [Unknown]
  - Cleft palate [Unknown]
  - Congenital anomaly [Unknown]
  - Injury [Unknown]
  - Anhedonia [Unknown]
  - Insomnia [Unknown]
  - Congenital pharyngeal anomaly [Unknown]
  - Attention deficit/hyperactivity disorder [Unknown]
  - Premature baby [Unknown]
  - Rhinitis allergic [Unknown]
  - Cough [Unknown]
